FAERS Safety Report 5816210-2 (Version None)
Quarter: 2008Q3

REPORT INFORMATION
  Report Type: 
  Country: None (occurrence: None)
  Receive Date: 20080721
  Receipt Date: 20080716
  Transmission Date: 20090109
  Serious: Yes (Hospitalization)
  Sender: FDA-Public Use
  Company Number: B0529361A

PATIENT
  Age: 62 Year
  Sex: Female

DRUGS (3)
  1. PAXIL [Suspect]
     Indication: DEPRESSION
     Dosage: 40MG PER DAY
     Route: 048
  2. WARFARIN SODIUM [Suspect]
     Indication: MITRAL VALVE REPLACEMENT
     Dosage: 3MG PER DAY
     Route: 048
  3. WARFARIN SODIUM [Suspect]
     Dosage: 3MG PER DAY
     Route: 048

REACTIONS (2)
  - COAGULATION TIME PROLONGED [None]
  - INTERNATIONAL NORMALISED RATIO INCREASED [None]
